FAERS Safety Report 20474507 (Version 8)
Quarter: 2023Q1

REPORT INFORMATION
  Report Type: Other
  Country: JP (occurrence: JP)
  Receive Date: 20220215
  Receipt Date: 20230216
  Transmission Date: 20230418
  Serious: Yes (Hospitalization, Other)
  Sender: FDA-Public Use
  Company Number: JP-CHUGAI-2022003213

PATIENT
  Age: 7 Year
  Sex: Female
  Weight: 11.6 kg

DRUGS (28)
  1. RISDIPLAM [Suspect]
     Active Substance: RISDIPLAM
     Indication: Spinal muscular atrophy
     Dosage: 0.25 MILLIGRAM/KILOGRAM, QD
     Route: 050
     Dates: start: 20211119, end: 20211126
  2. RISDIPLAM [Suspect]
     Active Substance: RISDIPLAM
     Dosage: 0.25 MILLIGRAM/KILOGRAM, QD
     Route: 050
     Dates: start: 20211209, end: 20220124
  3. RISDIPLAM [Suspect]
     Active Substance: RISDIPLAM
     Dosage: 0.25 MILLIGRAM/KILOGRAM, QD
     Route: 050
     Dates: start: 20220221, end: 20220914
  4. RISDIPLAM [Suspect]
     Active Substance: RISDIPLAM
     Dosage: 0.25 MILLIGRAM/KILOGRAM, QD
     Route: 050
     Dates: start: 20220915, end: 20221124
  5. RISDIPLAM [Suspect]
     Active Substance: RISDIPLAM
     Dosage: 0.25 MILLIGRAM/KILOGRAM, QD
     Route: 050
     Dates: start: 20221208
  6. ALFAROL [Concomitant]
     Active Substance: ALFACALCIDOL
     Dosage: UNK
     Route: 065
     Dates: start: 20220616
  7. CARBOCYSTEINE [Concomitant]
     Active Substance: CARBOCYSTEINE
     Dosage: UNK
     Route: 065
  8. AMBROXOL HYDROCHLORIDE [Concomitant]
     Active Substance: AMBROXOL HYDROCHLORIDE
     Dosage: UNK
     Route: 065
  9. CLARITHROMYCIN [Concomitant]
     Active Substance: CLARITHROMYCIN
     Dosage: UNK
     Route: 065
  10. FAMOTIDINE [Concomitant]
     Active Substance: FAMOTIDINE
     Dosage: UNK
     Route: 065
  11. PRANLUKAST [Concomitant]
     Active Substance: PRANLUKAST
     Dosage: UNK
     Route: 065
  12. MENATETRENONE [Concomitant]
     Active Substance: MENATETRENONE
     Dosage: UNK
     Route: 065
  13. LEVOCARNITINE [Concomitant]
     Active Substance: LEVOCARNITINE
     Dosage: UNK
     Route: 065
  14. BIO-THREE [Concomitant]
     Active Substance: HERBALS
     Dosage: UNK
     Route: 065
  15. CEPHALEXIN [Concomitant]
     Active Substance: CEPHALEXIN
     Dosage: UNK
     Route: 065
     Dates: start: 20220124, end: 20220721
  16. LACTOBACILLUS ACIDOPHILUS\STREPTOCOCCUS FAECAIS [Concomitant]
     Active Substance: LACTOBACILLUS ACIDOPHILUS\STREPTOCOCCUS FAECAIS
     Dosage: UNK
     Route: 065
     Dates: start: 20220721, end: 20220915
  17. FLOMOX [CEFCAPENE PIVOXIL HYDROCHLORIDE HYDRATE] [Concomitant]
     Dosage: UNK
     Route: 065
     Dates: start: 20220825, end: 20220924
  18. CEFZONE [Concomitant]
     Dosage: UNK
     Route: 065
     Dates: start: 20220902, end: 20220908
  19. CEFACLOR [Concomitant]
     Active Substance: CEFACLOR
     Dosage: UNK
     Route: 065
     Dates: start: 20220908, end: 20220912
  20. PETROLATUM [Concomitant]
     Active Substance: PETROLATUM
     Dosage: UNK
     Route: 065
  21. ZINC OXIDE [Concomitant]
     Active Substance: ZINC OXIDE
     Dosage: UNK
     Route: 065
  22. AZUNOL [Concomitant]
     Dosage: UNK
     Route: 003
  23. RINDERON VG [Concomitant]
     Active Substance: BETAMETHASONE VALERATE\GENTAMICIN SULFATE
     Dosage: UNK
     Route: 003
  24. GLYCOSAMINOGLYCANS [Concomitant]
     Active Substance: GLYCOSAMINOGLYCANS
     Dosage: UNK
     Route: 003
  25. NADIFLOXACIN [Concomitant]
     Active Substance: NADIFLOXACIN
     Dosage: UNK
     Route: 003
     Dates: end: 20220825
  26. KETOCONAZOLE [Concomitant]
     Active Substance: KETOCONAZOLE
     Dosage: UNK
     Route: 065
     Dates: start: 20220207, end: 20220211
  27. KETOCONAZOLE [Concomitant]
     Active Substance: KETOCONAZOLE
     Dosage: UNK
     Route: 065
     Dates: start: 20220704, end: 20220711
  28. ORTEXER [Concomitant]
     Dosage: UNK
     Route: 065
     Dates: start: 20220704, end: 20220710

REACTIONS (10)
  - Gastrointestinal haemorrhage [Recovered/Resolved]
  - Pneumonia [Recovered/Resolved]
  - Polyp [Unknown]
  - Gastrointestinal polyp haemorrhage [Recovered/Resolved]
  - Cellulitis [Recovering/Resolving]
  - General physical health deterioration [Unknown]
  - Viral infection [Unknown]
  - Impetigo [Recovering/Resolving]
  - Purpura [Recovering/Resolving]
  - Rash [Unknown]

NARRATIVE: CASE EVENT DATE: 20211126
